FAERS Safety Report 7770973-8 (Version None)
Quarter: 2011Q3

REPORT INFORMATION
  Report Type: 
  Country: None (occurrence: None)
  Receive Date: 20110922
  Receipt Date: 20101214
  Transmission Date: 20111222
  Serious: No
  Sender: FDA-Public Use
  Company Number: US-ASTRAZENECA-2010SE59203

PATIENT
  Age: 11 Year
  Sex: Female

DRUGS (2)
  1. SEROQUEL [Suspect]
     Indication: OBSESSIVE-COMPULSIVE DISORDER
     Route: 048
     Dates: start: 20090101
  2. SEROQUEL [Suspect]
     Indication: ATTENTION DEFICIT/HYPERACTIVITY DISORDER
     Route: 048
     Dates: start: 20090101

REACTIONS (7)
  - OBSESSIVE-COMPULSIVE DISORDER [None]
  - ATTENTION DEFICIT/HYPERACTIVITY DISORDER [None]
  - EATING DISORDER [None]
  - DRUG DOSE OMISSION [None]
  - WEIGHT DECREASED [None]
  - PANIC ATTACK [None]
  - INCORRECT DOSE ADMINISTERED [None]
